FAERS Safety Report 17600724 (Version 1)
Quarter: 2020Q1

REPORT INFORMATION
  Report Type: Spontaneous
  Country: AR (occurrence: AR)
  Receive Date: 20200330
  Receipt Date: 20200330
  Transmission Date: 20200409
  Serious: Yes (Hospitalization, Other)
  Sender: FDA-Public Use
  Company Number: AR-ABBVIE-20K-007-3313778-00

PATIENT
  Age: 22 Year
  Sex: Male

DRUGS (1)
  1. HUMIRA [Suspect]
     Active Substance: ADALIMUMAB
     Indication: PSORIASIS
     Route: 058

REACTIONS (6)
  - Disseminated tuberculosis [Unknown]
  - Abdominal pain [Unknown]
  - Pleural effusion [Unknown]
  - Lymphadenopathy [Unknown]
  - Dyspnoea [Unknown]
  - Localised oedema [Unknown]
